FAERS Safety Report 17853429 (Version 2)
Quarter: 2020Q2

REPORT INFORMATION
  Report Type: Report from Study
  Country: None (occurrence: IL)
  Receive Date: 20200603
  Receipt Date: 20200612
  Transmission Date: 20200714
  Serious: Yes (Hospitalization)
  Sender: FDA-Public Use
  Company Number: IL-ABBVIE-20K-082-3427815-00

PATIENT
  Sex: Male

DRUGS (2)
  1. DUODOPA [Suspect]
     Active Substance: CARBIDOPA\LEVODOPA
     Indication: PARKINSON^S DISEASE
     Dosage: CURRENT: MORNING DOSE 15.0ML, CONTINUOUS RATE 3.8ML, EXTRA DOSE 1.5ML
     Route: 050
  2. DUODOPA [Suspect]
     Active Substance: CARBIDOPA\LEVODOPA
     Dosage: CURRENT MORNING DOSE 12.5 ML,CRD 4.4 ML/HOUR,CURRENT EXTRA DOSE 1.5 ML
     Route: 050
     Dates: start: 20190722

REACTIONS (3)
  - On and off phenomenon [Unknown]
  - Cardiac disorder [Not Recovered/Not Resolved]
  - Dyskinesia [Unknown]
